FAERS Safety Report 13792625 (Version 3)
Quarter: 2017Q3

REPORT INFORMATION
  Report Type: Spontaneous
  Country: US (occurrence: US)
  Receive Date: 20170725
  Receipt Date: 20170822
  Transmission Date: 20171127
  Serious: Yes (Hospitalization, Other)
  Sender: FDA-Public Use
  Company Number: US-TESARO, INC.-US-2017TSO01184

PATIENT

DRUGS (3)
  1. ZEJULA [Suspect]
     Active Substance: NIRAPARIB
     Indication: CHOLANGIOCARCINOMA
     Dosage: 200 MG, QD
     Route: 048
     Dates: start: 20170511, end: 2017
  2. ZEJULA [Suspect]
     Active Substance: NIRAPARIB
     Indication: METASTASES TO LIVER
  3. ZEJULA [Suspect]
     Active Substance: NIRAPARIB
     Indication: OVARIAN CANCER
     Dosage: 300 MG, QD
     Route: 048
     Dates: start: 20170508, end: 20170510

REACTIONS (5)
  - Product use in unapproved indication [Unknown]
  - Bile duct obstruction [Recovered/Resolved]
  - Platelet count decreased [Unknown]
  - Bacterial infection [Recovered/Resolved]
  - Blood count abnormal [Recovered/Resolved]

NARRATIVE: CASE EVENT DATE: 2017
